FAERS Safety Report 5067704-1 (Version None)
Quarter: 2006Q3

REPORT INFORMATION
  Report Type: 
  Country: None (occurrence: None)
  Receive Date: 20060731
  Receipt Date: 20060719
  Transmission Date: 20061208
  Serious: Yes (Hospitalization)
  Sender: FDA-Public Use
  Company Number: A-US2005-12602

PATIENT
  Age: 27 Year
  Sex: Female

DRUGS (6)
  1. TRACLEER [Suspect]
     Indication: PULMONARY HYPERTENSION
     Dosage: SEE IMAGE
     Route: 048
     Dates: start: 20040501, end: 20040601
  2. TRACLEER [Suspect]
     Indication: PULMONARY HYPERTENSION
     Dosage: SEE IMAGE
     Route: 048
     Dates: start: 20040601, end: 20040601
  3. TRACLEER [Suspect]
     Indication: PULMONARY HYPERTENSION
     Dosage: SEE IMAGE
     Route: 048
     Dates: start: 20040801, end: 20050601
  4. LASIX [Concomitant]
  5. LANOXIN [Concomitant]
  6. WARFARIN SODIUM [Concomitant]

REACTIONS (3)
  - CHOLELITHIASIS [None]
  - PAIN IN JAW [None]
  - TRISMUS [None]
